FAERS Safety Report 24307838 (Version 1)
Quarter: 2024Q3

REPORT INFORMATION
  Report Type: Spontaneous
  Country: JP (occurrence: JP)
  Receive Date: 20240911
  Receipt Date: 20240911
  Transmission Date: 20241017
  Serious: Yes (Other)
  Sender: MERCK
  Company Number: JP-MSD-2409JPN000753J

PATIENT
  Age: 5 Decade
  Sex: Female

DRUGS (1)
  1. KEYTRUDA [Suspect]
     Active Substance: PEMBROLIZUMAB
     Indication: Cervix carcinoma stage IV
     Dosage: UNK
     Route: 065

REACTIONS (3)
  - Immune-mediated cholangitis [Unknown]
  - Immune-mediated hepatic disorder [Unknown]
  - Eczema [Unknown]
